FAERS Safety Report 5702701-1 (Version None)
Quarter: 2008Q2

REPORT INFORMATION
  Report Type: 
  Country: None (occurrence: None)
  Receive Date: 20080411
  Receipt Date: 20080407
  Transmission Date: 20081010
  Serious: Yes (Life-Threatening, Hospitalization, Disabling)
  Sender: FDA-Public Use
  Company Number: A0699232A

PATIENT
  Age: 44 Year
  Sex: Male
  Weight: 113.6 kg

DRUGS (5)
  1. ADVAIR HFA [Suspect]
     Indication: ASTHMA
     Route: 055
     Dates: start: 20010101
  2. SEREVENT [Suspect]
     Indication: ASTHMA
     Route: 055
     Dates: start: 20010101, end: 20021101
  3. FLOVENT [Concomitant]
     Indication: ASTHMA
     Route: 055
     Dates: end: 20031113
  4. ALBUTEROL [Concomitant]
  5. PREDNISONE [Concomitant]

REACTIONS (6)
  - ACUTE RESPIRATORY FAILURE [None]
  - ASTHMA [None]
  - EMOTIONAL DISTRESS [None]
  - MENTAL DISORDER [None]
  - PAIN [None]
  - STATUS ASTHMATICUS [None]
